FAERS Safety Report 7537405-6 (Version None)
Quarter: 2011Q2

REPORT INFORMATION
  Report Type: 
  Country: None (occurrence: None)
  Receive Date: 20110609
  Receipt Date: 20110601
  Transmission Date: 20111010
  Serious: Yes (Other)
  Sender: FDA-Public Use
  Company Number: US-BAYER-2011-048015

PATIENT
  Age: 27 Year
  Sex: Female

DRUGS (2)
  1. MIRENA [Suspect]
     Indication: CONTRACEPTION
     Dosage: 20 ?G/D, CONT
     Route: 015
     Dates: start: 20110119, end: 20110523
  2. MIRENA [Suspect]
     Dosage: 20 ?G/D, CONT
     Dates: start: 20110522

REACTIONS (2)
  - UTERINE PERFORATION [None]
  - NEPHROLITHIASIS [None]
